FAERS Safety Report 6124854-6 (Version None)
Quarter: 2009Q1

REPORT INFORMATION
  Report Type: 
  Country: None (occurrence: None)
  Receive Date: 20090319
  Receipt Date: 20090309
  Transmission Date: 20090719
  Serious: Yes (Hospitalization)
  Sender: FDA-Public Use
  Company Number: JP-PFIZER INC-2009175256

PATIENT

DRUGS (3)
  1. LIPITOR [Suspect]
     Dosage: 10 MG, 1X/DAY
     Route: 048
  2. ASPIRIN [Suspect]
     Dosage: UNK
     Route: 048
  3. BEZATOL - SLOW RELEASE [Suspect]
     Dosage: UNK
     Route: 048

REACTIONS (1)
  - BLOOD SODIUM DECREASED [None]
